FAERS Safety Report 17931054 (Version 2)
Quarter: 2020Q3

REPORT INFORMATION
  Report Type: Spontaneous
  Country: EE (occurrence: EE)
  Receive Date: 20200623
  Receipt Date: 20200721
  Transmission Date: 20201103
  Serious: Yes (Other)
  Sender: FDA-Public Use
  Company Number: EE-BAYER-2020-115777

PATIENT
  Age: 39 Year
  Sex: Female

DRUGS (1)
  1. LEVONORGESTREL IUS [UNKNOWN] [Suspect]
     Active Substance: LEVONORGESTREL
     Indication: CONTRACEPTION
     Route: 015

REACTIONS (7)
  - Feeling of body temperature change [Recovered/Resolved]
  - Alopecia [None]
  - Hypertension [None]
  - Myocarditis [None]
  - Hyperhidrosis [Recovered/Resolved]
  - Angina pectoris [Recovered/Resolved]
  - Muscle spasms [None]
